FAERS Safety Report 9768859 (Version 1)
Quarter: 2013Q4

REPORT INFORMATION
  Report Type: Spontaneous
  Country: US (occurrence: None)
  Receive Date: 20131217
  Receipt Date: 20131217
  Transmission Date: 20140711
  Serious: Yes (Life-Threatening)
  Sender: FDA-Public Use
  Company Number: None

PATIENT
  Age: 29 Year
  Sex: Female
  Weight: 99.79 kg

DRUGS (1)
  1. HIZENTRA [Suspect]
     Indication: IMMUNODEFICIENCY COMMON VARIABLE
     Dosage: 16G, WEEKLY, GIVEN INTO /UNDER THE SKIN

REACTIONS (6)
  - Urticaria [None]
  - Contusion [None]
  - Headache [None]
  - Amnesia [None]
  - Infusion site erythema [None]
  - Infusion site oedema [None]
